FAERS Safety Report 9512488 (Version 1)
Quarter: 2013Q1

REPORT INFORMATION
  Report Type: Spontaneous
  Country: US (occurrence: None)
  Receive Date: 20130305
  Receipt Date: 20130305
  Transmission Date: 20140127
  Serious: Yes (Hospitalization, Other)
  Sender: FDA-Public Use
  Company Number: 163-21880-12041623

PATIENT
  Age: 65 Year
  Sex: Male
  Weight: 119.3 kg

DRUGS (14)
  1. REVLIMID (LENALIDOMIDE) (CAPSULES) [Suspect]
     Indication: PLASMA CELL MYELOMA
     Dosage: 21 IN 28 D
     Route: 048
     Dates: start: 20111124
  2. DECADRON [Concomitant]
  3. ATIVAN (LORAZEPAM) (UNKNOWN) [Concomitant]
  4. ZOLOFT (SERTRALINE HYDROCHLORIDE) (UNKNOWN) [Concomitant]
  5. OS-CAL (OS-CAL) (UNKNOWN) [Concomitant]
  6. ACYCLOVIR (ACICLOVIR) (UNKNOWN) [Concomitant]
  7. KLOR-CON (POTASSIUM CHLORIDE) (UNKNOWN) [Concomitant]
  8. MULTIVITAMINS (MULTIVITAMINS) (UNKNOWN) [Concomitant]
  9. VITAMIN C [Concomitant]
  10. SAW PALMETTO (SERENOA REPENS) (UNKNOWN) [Concomitant]
  11. POMEGRANATE (ALL OTHER NON-THERAPEUTIC PRODUCTS) (UKNOWN) [Concomitant]
  12. ZOMETA (ZOLEDRONIC ACID) (UNKNOWN) [Concomitant]
  13. VICODIN (VICODIN) (UNKNOWN) [Concomitant]
  14. ASPIRIN (ACETYLSALICYLIC ACID) (UNKNOWN) (ACETYLSALICYLIC ACID) [Concomitant]

REACTIONS (3)
  - Deep vein thrombosis [None]
  - Flatulence [None]
  - Fatigue [None]
